FAERS Safety Report 6391330-5 (Version None)
Quarter: 2009Q4

REPORT INFORMATION
  Report Type: 
  Country: None (occurrence: None)
  Receive Date: 20091007
  Receipt Date: 20091005
  Transmission Date: 20100525
  Serious: Yes (Death, Other)
  Sender: FDA-Public Use
  Company Number: PHEH2009US10927

PATIENT
  Sex: Male

DRUGS (4)
  1. EXJADE [Suspect]
     Indication: THALASSAEMIA
     Dosage: 1250 MG DAILY
     Route: 048
     Dates: start: 20060101
  2. EXJADE [Suspect]
     Indication: SERUM FERRITIN INCREASED
     Dosage: 1500 UNK, DAILY
     Route: 048
     Dates: start: 20090427, end: 20090902
  3. MORPHINE [Concomitant]
     Route: 048
  4. PHENERGAN [Concomitant]
     Route: 048

REACTIONS (7)
  - COAGULOPATHY [None]
  - CONCOMITANT DISEASE AGGRAVATED [None]
  - HEPATIC ENZYME INCREASED [None]
  - HEPATIC FAILURE [None]
  - LETHARGY [None]
  - RENAL FAILURE [None]
  - SOMNOLENCE [None]
